FAERS Safety Report 18360669 (Version 1)
Quarter: 2020Q4

REPORT INFORMATION
  Report Type: Spontaneous
  Country: US (occurrence: US)
  Receive Date: 20201008
  Receipt Date: 20201008
  Transmission Date: 20210114
  Serious: Yes (Death)
  Sender: FDA-Public Use
  Company Number: None

PATIENT
  Sex: Male
  Weight: 76.2 kg

DRUGS (11)
  1. INLYTA [Suspect]
     Active Substance: AXITINIB
     Indication: RENAL CANCER
     Route: 048
     Dates: start: 20191219, end: 20200917
  2. NORVASC [Concomitant]
     Active Substance: AMLODIPINE BESYLATE
  3. NYSTATIN-TRIAMCINOLONE [Concomitant]
  4. VITAMIN D2 [Concomitant]
     Active Substance: ERGOCALCIFEROL
  5. ASPIRIN 81 [Concomitant]
     Active Substance: ASPIRIN
  6. PERCOCET [Concomitant]
     Active Substance: ACETAMINOPHEN\OXYCODONE HYDROCHLORIDE
  7. LIPITOR [Concomitant]
     Active Substance: ATORVASTATIN CALCIUM
  8. LOPRESSOR [Concomitant]
     Active Substance: METOPROLOL TARTRATE
  9. PLAVIX [Concomitant]
     Active Substance: CLOPIDOGREL BISULFATE
  10. LEVOFLOXACIN. [Concomitant]
     Active Substance: LEVOFLOXACIN
  11. FOLVITE-D [Concomitant]

REACTIONS (1)
  - Death [None]
